FAERS Safety Report 11093308 (Version 2)
Quarter: 2015Q2

REPORT INFORMATION
  Report Type: Spontaneous
  Country: NO (occurrence: NO)
  Receive Date: 20150506
  Receipt Date: 20150513
  Transmission Date: 20150821
  Serious: Yes (Life-Threatening, Hospitalization)
  Sender: FDA-Public Use
  Company Number: NO-PFIZER INC-2015148626

PATIENT
  Age: 44 Year
  Sex: Male

DRUGS (6)
  1. SALAZOPYRIN [Suspect]
     Active Substance: SULFASALAZINE
     Indication: RHEUMATOID ARTHRITIS
     Dosage: 500 MG, DAILY
     Route: 048
     Dates: start: 201502
  2. MODIFENAC [Concomitant]
     Active Substance: DICLOFENAC
     Dosage: 75 MG, 2X/DAY
     Route: 048
  3. SALAZOPYRIN [Suspect]
     Active Substance: SULFASALAZINE
     Dosage: 1000 MG, 2X/DAY
     Route: 048
     Dates: end: 20150413
  4. NEXIUM [Concomitant]
     Active Substance: ESOMEPRAZOLE MAGNESIUM
     Indication: GASTRITIS
     Dosage: 20 MG, 2X/DAY
     Route: 048
  5. COSYLAN [Concomitant]
     Indication: COUGH
     Dosage: UNK
     Route: 048
  6. IBUX [Concomitant]
     Active Substance: IBUPROFEN
     Dosage: 400 MG UP TO 3 TIMES DAILY
     Route: 048

REACTIONS (3)
  - Tonsillitis [Recovered/Resolved]
  - Peritonsillar abscess [Recovered/Resolved]
  - Neutropenia [Recovered/Resolved]

NARRATIVE: CASE EVENT DATE: 20150413
